FAERS Safety Report 6832551-4 (Version None)
Quarter: 2010Q3

REPORT INFORMATION
  Report Type: 
  Country: None (occurrence: None)
  Receive Date: 20100712
  Receipt Date: 20070315
  Transmission Date: 20110219
  Serious: No
  Sender: FDA-Public Use
  Company Number: US-PFIZER INC-2007021106

PATIENT
  Sex: Male
  Weight: 77.11 kg

DRUGS (7)
  1. CHANTIX [Suspect]
     Indication: SMOKING CESSATION THERAPY
     Dates: start: 20070101
  2. ADVAIR DISKUS 100/50 [Concomitant]
  3. MONTELUKAST SODIUM [Concomitant]
  4. ZETIA [Concomitant]
  5. ZYRTEC [Concomitant]
  6. SPIRIVA [Concomitant]
  7. NASAL PREPARATIONS [Concomitant]
     Indication: HYPERSENSITIVITY

REACTIONS (1)
  - INSOMNIA [None]
